FAERS Safety Report 7104705-3 (Version None)
Quarter: 2010Q4

REPORT INFORMATION
  Report Type: 
  Country: None (occurrence: None)
  Receive Date: 20101116
  Receipt Date: 20101102
  Transmission Date: 20110411
  Serious: Yes (Other)
  Sender: FDA-Public Use
  Company Number: US-RB-015002-10

PATIENT
  Age: 61 Year
  Sex: Male

DRUGS (4)
  1. MUCINEX DM [Suspect]
     Dosage: PATIENT HAS BEEN TAKING 4 TABLETS PER DAY FOR 2 - 3 DAYS.
     Route: 048
  2. FLOMAX [Concomitant]
  3. THIOTIXINE [Concomitant]
  4. ARTANE [Concomitant]

REACTIONS (3)
  - AMAUROSIS FUGAX [None]
  - BLINDNESS [None]
  - HEADACHE [None]
